FAERS Safety Report 19820172 (Version 1)
Quarter: 2021Q3

REPORT INFORMATION
  Report Type: Spontaneous
  Country: US (occurrence: US)
  Receive Date: 20210909
  Receipt Date: 20210909
  Transmission Date: 20211014
  Serious: Yes (Hospitalization)
  Sender: FDA-Public Use
  Company Number: None

PATIENT
  Age: 61 Year
  Sex: Male
  Weight: 72 kg

DRUGS (1)
  1. CISPLATIN. [Suspect]
     Active Substance: CISPLATIN
     Dates: end: 20210816

REACTIONS (8)
  - Stomatitis [None]
  - Dehydration [None]
  - Hypoglycaemia [None]
  - Oral pain [None]
  - Acute kidney injury [None]
  - Failure to thrive [None]
  - Weight decreased [None]
  - Hypophagia [None]

NARRATIVE: CASE EVENT DATE: 20210822
